FAERS Safety Report 4939511-9 (Version None)
Quarter: 2006Q1

REPORT INFORMATION
  Report Type: 
  Country: None (occurrence: None)
  Receive Date: 20060306
  Receipt Date: 20060223
  Transmission Date: 20060701
  Serious: Yes (Hospitalization)
  Sender: FDA-Public Use
  Company Number: OMPQ-NO-0603S-0127

PATIENT
  Age: 77 Year
  Sex: Male

DRUGS (1)
  1. OMNIPAQUE 140 [Suspect]
     Dosage: 100 ML, SINGLE DOSE, I.V.
     Route: 042
     Dates: start: 20060215, end: 20060215

REACTIONS (1)
  - NEUTROPHIL COUNT INCREASED [None]
